FAERS Safety Report 4319068-6 (Version None)
Quarter: 2004Q1

REPORT INFORMATION
  Report Type: 
  Country: None (occurrence: None)
  Receive Date: 20040318
  Receipt Date: 20040318
  Transmission Date: 20041129
  Serious: No
  Sender: FDA-Public Use
  Company Number: None

PATIENT
  Sex: Female
  Weight: 83.9154 kg

DRUGS (2)
  1. DEMEROL [Suspect]
     Dates: start: 20031010, end: 20031010
  2. VERSED [Suspect]

REACTIONS (1)
  - HYPOTENSION [None]
